FAERS Safety Report 4372198-5 (Version None)
Quarter: 2004Q2

REPORT INFORMATION
  Report Type: 
  Country: None (occurrence: None)
  Receive Date: 20040607
  Receipt Date: 20040527
  Transmission Date: 20050107
  Serious: Yes (Other)
  Sender: FDA-Public Use
  Company Number: CH-GLAXOSMITHKLINE-B0334409A

PATIENT
  Age: 56 Year
  Sex: Female

DRUGS (11)
  1. FORTAM [Suspect]
     Indication: OSTEOMYELITIS
     Dosage: 4G PER DAY
     Route: 042
     Dates: start: 20040324, end: 20040331
  2. GENTAMYCIN SULFATE [Suspect]
     Indication: OSTEOMYELITIS
     Dosage: 240MG PER DAY
     Route: 042
     Dates: start: 20040324, end: 20040331
  3. LEFLUNOMIDE [Concomitant]
     Dosage: 20MG PER DAY
  4. PREDNISONE [Concomitant]
     Dosage: 5MG PER DAY
  5. FOLVITE [Concomitant]
     Dosage: 5MG PER DAY
  6. DILTIAZEM [Concomitant]
     Dosage: 180MG PER DAY
  7. DICLOFENAC [Concomitant]
     Dosage: 150MG PER DAY
  8. METOPROLOL TARTRATE [Concomitant]
     Dosage: 12.5MG PER DAY
     Dates: start: 20040101
  9. CALCIUM [Concomitant]
     Dosage: 2TAB PER DAY
  10. ESOMEPRAZOLE [Concomitant]
     Dosage: 40MG PER DAY
  11. TERIPARATID [Concomitant]
     Dosage: 1U PER DAY
     Route: 058
     Dates: start: 20030319

REACTIONS (5)
  - ALANINE AMINOTRANSFERASE INCREASED [None]
  - ASPARTATE AMINOTRANSFERASE INCREASED [None]
  - BLOOD ALKALINE PHOSPHATASE INCREASED [None]
  - GAMMA-GLUTAMYLTRANSFERASE INCREASED [None]
  - HEPATOCELLULAR DAMAGE [None]
